FAERS Safety Report 6663795-2 (Version None)
Quarter: 2010Q2

REPORT INFORMATION
  Report Type: 
  Country: None (occurrence: None)
  Receive Date: 20100401
  Receipt Date: 20100319
  Transmission Date: 20101027
  Serious: Yes (Other)
  Sender: FDA-Public Use
  Company Number: US-JNJFOC-20100301239

PATIENT
  Sex: Female
  Weight: 55.34 kg

DRUGS (7)
  1. ULTRAM [Suspect]
     Indication: NEURALGIA
     Dosage: 1 EVERY 6 HOURS AS NEEDED
     Route: 048
  2. TRAMADOL HCL [Suspect]
     Indication: NEURALGIA
     Dosage: 1 EVERY 6 HOURS AS NEEDED
     Route: 048
  3. ZESTRIL [Concomitant]
     Indication: HYPERTENSION
     Dosage: DAILY
     Route: 048
  4. CHLORTHALIDONE [Concomitant]
     Indication: HYPERTENSION
     Dosage: ^EVERY OTHER DAY^
     Route: 048
  5. SPIRIVA [Concomitant]
     Indication: RESPIRATORY DISORDER
     Route: 055
  6. CORTISONE ACETATE [Concomitant]
     Indication: RESPIRATORY DISORDER
     Dosage: AS NEEDED
     Route: 055
  7. LORAZEPAM [Concomitant]
     Indication: NERVOUSNESS
     Dosage: HALF TABLET TWICE A DAY
     Route: 048

REACTIONS (6)
  - ABASIA [None]
  - FALL [None]
  - INFLUENZA LIKE ILLNESS [None]
  - INSOMNIA [None]
  - MALAISE [None]
  - TRANCE [None]
